FAERS Safety Report 16803308 (Version 1)
Quarter: 2019Q3

REPORT INFORMATION
  Report Type: Report from Study
  Country: DE (occurrence: DE)
  Receive Date: 20190913
  Receipt Date: 20190913
  Transmission Date: 20191005
  Serious: Yes (Other)
  Sender: FDA-Public Use
  Company Number: DE-ROCHE-2403552

PATIENT
  Sex: Female
  Weight: 65 kg

DRUGS (11)
  1. RANIBIZUMAB. [Suspect]
     Active Substance: RANIBIZUMAB
     Indication: MACULAR OEDEMA
     Dosage: (RIGHT EYE)
     Route: 050
     Dates: start: 20151119
  2. RANIBIZUMAB. [Suspect]
     Active Substance: RANIBIZUMAB
     Indication: RETINAL VEIN OCCLUSION
     Dosage: (RIGHT EYE)
     Route: 050
     Dates: start: 20151222
  3. RANIBIZUMAB. [Suspect]
     Active Substance: RANIBIZUMAB
     Dosage: (RIGHT EYE)
     Route: 050
     Dates: start: 20160719
  4. RANIBIZUMAB. [Suspect]
     Active Substance: RANIBIZUMAB
     Dosage: (RIGHT EYE)
     Route: 050
     Dates: start: 20160513
  5. RANIBIZUMAB. [Suspect]
     Active Substance: RANIBIZUMAB
     Dosage: (RIGHT EYE)
     Route: 050
     Dates: start: 20161021
  6. RANIBIZUMAB. [Suspect]
     Active Substance: RANIBIZUMAB
     Dosage: (RIGHT EYE)
     Route: 050
     Dates: start: 20160617
  7. RANIBIZUMAB. [Suspect]
     Active Substance: RANIBIZUMAB
     Dosage: (RIGHT EYE)
     Route: 050
     Dates: start: 20161117, end: 20161117
  8. RANIBIZUMAB. [Suspect]
     Active Substance: RANIBIZUMAB
     Dosage: (RIGHT EYE)
     Route: 050
     Dates: start: 20160201
  9. RANIBIZUMAB. [Suspect]
     Active Substance: RANIBIZUMAB
     Dosage: (RIGHT EYE)
     Route: 050
     Dates: start: 20160912
  10. XALATAN [Concomitant]
     Active Substance: LATANOPROST
     Indication: PRODUCT USED FOR UNKNOWN INDICATION
     Route: 065
     Dates: start: 20080325
  11. AZARGA [Concomitant]
     Active Substance: BRINZOLAMIDE\TIMOLOL MALEATE
     Indication: PRODUCT USED FOR UNKNOWN INDICATION
     Route: 065
     Dates: start: 20090401

REACTIONS (2)
  - Concomitant disease aggravated [Recovering/Resolving]
  - Cystoid macular oedema [Recovering/Resolving]

NARRATIVE: CASE EVENT DATE: 20170109
